FAERS Safety Report 8873103 (Version 1)
Quarter: 2012Q4

REPORT INFORMATION
  Report Type: Spontaneous
  Country: US (occurrence: None)
  Receive Date: 20121026
  Receipt Date: 20121026
  Transmission Date: 20130627
  Serious: No
  Sender: FDA-Public Use
  Company Number: None

PATIENT
  Age: 43 Year
  Sex: Male
  Weight: 113.4 kg

DRUGS (1)
  1. CREST PRO-HEALTH RINSE [Suspect]
     Indication: ORAL HYGIENE
     Route: 004
     Dates: start: 20120901, end: 20121025

REACTIONS (3)
  - Oral discomfort [None]
  - Glossodynia [None]
  - Dry mouth [None]
